FAERS Safety Report 22301857 (Version 1)
Quarter: 2023Q2

REPORT INFORMATION
  Report Type: Spontaneous
  Country: US (occurrence: US)
  Receive Date: 20230510
  Receipt Date: 20230510
  Transmission Date: 20230722
  Serious: No
  Sender: FDA-Public Use
  Company Number: US-PADAGIS-2023PAD00669

PATIENT

DRUGS (3)
  1. MUPIROCIN [Suspect]
     Active Substance: MUPIROCIN
     Indication: Rash macular
     Dosage: UNK, ONE APPLICATION PER DAY
     Route: 065
     Dates: start: 20230403, end: 20230428
  2. MUPIROCIN [Suspect]
     Active Substance: MUPIROCIN
     Indication: Infection
  3. MUPIROCIN [Suspect]
     Active Substance: MUPIROCIN
     Indication: Thermal burn

REACTIONS (3)
  - Condition aggravated [Not Recovered/Not Resolved]
  - Drug ineffective [Unknown]
  - Product use in unapproved indication [Unknown]

NARRATIVE: CASE EVENT DATE: 20230403
